FAERS Safety Report 10996621 (Version 1)
Quarter: 2015Q1

REPORT INFORMATION
  Report Type: Spontaneous
  Country: US (occurrence: None)
  Receive Date: 20150331
  Receipt Date: 20150331
  Transmission Date: 20150721
  Serious: Yes (Disabling)
  Sender: FDA-Public Use
  Company Number: PHEH2014US009660

PATIENT
  Age: 81 Year
  Sex: Female
  Weight: 73.5 kg

DRUGS (1)
  1. EXELON PATCH [Suspect]
     Active Substance: RIVASTIGMINE
     Indication: DEMENTIA ALZHEIMER^S TYPE
     Route: 062
     Dates: start: 20120107, end: 20140507

REACTIONS (5)
  - Application site pain [None]
  - Dermatitis contact [None]
  - Application site erythema [None]
  - Agitation [None]
  - Application site pruritus [None]

NARRATIVE: CASE EVENT DATE: 20120407
